FAERS Safety Report 8586770-X (Version None)
Quarter: 2012Q3

REPORT INFORMATION
  Report Type: 
  Country: None (occurrence: None)
  Receive Date: 20120810
  Receipt Date: 20120801
  Transmission Date: 20120928
  Serious: Yes (Hospitalization)
  Sender: FDA-Public Use
  Company Number: US-ELI_LILLY_AND_COMPANY-US201208001218

PATIENT
  Sex: Female

DRUGS (1)
  1. HUMATROPE [Suspect]
     Indication: BLOOD GROWTH HORMONE
     Dosage: 0.3 MG, QD
     Dates: end: 20120601

REACTIONS (5)
  - SWELLING [None]
  - FATIGUE [None]
  - IMPAIRED GASTRIC EMPTYING [None]
  - ILL-DEFINED DISORDER [None]
  - BLOOD GLUCOSE ABNORMAL [None]
